FAERS Safety Report 6088962-0 (Version None)
Quarter: 2009Q1

REPORT INFORMATION
  Report Type: 
  Country: None (occurrence: None)
  Receive Date: 20090219
  Receipt Date: 20090209
  Transmission Date: 20090719
  Serious: Yes (Life-Threatening, Hospitalization)
  Sender: FDA-Public Use
  Company Number: SA-JNJFOC-20090106705

PATIENT
  Age: 63 Year
  Sex: Male

DRUGS (1)
  1. DACOGEN [Suspect]
     Indication: MYELODYSPLASTIC SYNDROME
     Dosage: 20 MG/M2, 1 IN 1 DAY, INTRAVENOUS
     Route: 042
     Dates: start: 20090103, end: 20090105

REACTIONS (6)
  - ANAEMIA [None]
  - BLAST CELLS PRESENT [None]
  - COLITIS [None]
  - DIARRHOEA [None]
  - THROMBOCYTOPENIA [None]
  - VOMITING [None]
